FAERS Safety Report 24416929 (Version 1)
Quarter: 2024Q4

REPORT INFORMATION
  Report Type: Report from Study
  Country: IE (occurrence: IE)
  Receive Date: 20241009
  Receipt Date: 20241009
  Transmission Date: 20250114
  Serious: Yes (Other)
  Sender: PFIZER
  Company Number: IE-ROCHE-10000090326

PATIENT
  Sex: Male

DRUGS (2)
  1. METHOTREXATE SODIUM [Suspect]
     Active Substance: METHOTREXATE SODIUM
     Dosage: UNK
  2. TOCILIZUMAB [Suspect]
     Active Substance: TOCILIZUMAB
     Dosage: 162 MG
     Route: 058

REACTIONS (3)
  - Decreased appetite [Unknown]
  - Injection site reaction [Unknown]
  - White blood cell count decreased [Unknown]
